FAERS Safety Report 9134430 (Version 1)
Quarter: 2013Q1

REPORT INFORMATION
  Report Type: Spontaneous
  Country: AT (occurrence: AT)
  Receive Date: 20130304
  Receipt Date: 20130304
  Transmission Date: 20140127
  Serious: Yes (Hospitalization, Other)
  Sender: FDA-Public Use
  Company Number: AT-ELI_LILLY_AND_COMPANY-AT201302008101

PATIENT
  Sex: Female
  Weight: 75 kg

DRUGS (1)
  1. LISPRO [Suspect]
     Route: 058

REACTIONS (4)
  - Blood glucose increased [Unknown]
  - Blood ketone body increased [Unknown]
  - Nausea [Unknown]
  - Vomiting [Unknown]
